FAERS Safety Report 7130380-8 (Version None)
Quarter: 2010Q4

REPORT INFORMATION
  Report Type: 
  Country: None (occurrence: None)
  Receive Date: 20101201
  Receipt Date: 20101118
  Transmission Date: 20110411
  Serious: Yes (Hospitalization)
  Sender: FDA-Public Use
  Company Number: US-ELI_LILLY_AND_COMPANY-US201011005230

PATIENT
  Sex: Female

DRUGS (8)
  1. FORTEO [Suspect]
     Indication: OSTEOPOROSIS
     Dosage: 20 UG, DAILY (1/D)
  2. FORTEO [Suspect]
     Dosage: 20 UG, DAILY (1/D)
     Dates: start: 20101116
  3. CARDIZEM [Concomitant]
  4. PLAVIX [Concomitant]
  5. SYNTHROID [Concomitant]
  6. LIPITOR [Concomitant]
  7. SINGULAIR [Concomitant]
  8. ADVAIR DISKUS 100/50 [Concomitant]

REACTIONS (1)
  - ASTHMA [None]
